FAERS Safety Report 18843153 (Version 1)
Quarter: 2021Q1

REPORT INFORMATION
  Report Type: Report from Study
  Country: US (occurrence: US)
  Receive Date: 20210203
  Receipt Date: 20210203
  Transmission Date: 20210419
  Serious: No
  Sender: FDA-Public Use
  Company Number: US-EXELIXIS-CABO-19025890

PATIENT
  Sex: Male

DRUGS (1)
  1. CABOMETYX [Suspect]
     Active Substance: CABOZANTINIB S-MALATE
     Indication: RENAL CELL CARCINOMA
     Dosage: 60 MG, QD
     Route: 048
     Dates: start: 20190710, end: 20191205

REACTIONS (6)
  - Diarrhoea [Recovered/Resolved]
  - Wound dehiscence [Unknown]
  - Decreased appetite [Unknown]
  - Weight decreased [Unknown]
  - Taste disorder [Unknown]
  - Fatigue [Unknown]
